FAERS Safety Report 17636036 (Version 1)
Quarter: 2020Q2

REPORT INFORMATION
  Report Type: Spontaneous
  Country: US (occurrence: US)
  Receive Date: 20200407
  Receipt Date: 20200407
  Transmission Date: 20200713
  Serious: Yes (Life-Threatening, Hospitalization)
  Sender: FDA-Public Use
  Company Number: US-JNJFOC-20200400886

PATIENT
  Age: 48 Year
  Sex: Female

DRUGS (1)
  1. IBUPROFEN. [Suspect]
     Active Substance: IBUPROFEN
     Indication: ARTHRALGIA
     Dosage: ABOUT 20 TABLETS (ABOUT 4 GRAM PER DAY)
     Route: 048

REACTIONS (6)
  - Renal tubular acidosis [Recovered/Resolved]
  - Vitamin D decreased [Recovered/Resolved]
  - Transaminases increased [Recovered/Resolved]
  - Rhabdomyolysis [Recovered/Resolved]
  - Drug abuse [Unknown]
  - Overdose [Unknown]
